FAERS Safety Report 10762345 (Version 1)
Quarter: 2015Q1

REPORT INFORMATION
  Report Type: Spontaneous
  Country: US (occurrence: None)
  Receive Date: 20150129
  Receipt Date: 20150129
  Transmission Date: 20150721
  Serious: Yes (Other)
  Sender: FDA-Public Use
  Company Number: 118414

PATIENT
  Age: 87 Year
  Sex: Male

DRUGS (1)
  1. KEPPRA [Suspect]
     Active Substance: LEVETIRACETAM
     Indication: SEIZURE
     Dosage: ONCE AT NIGHT

REACTIONS (4)
  - Muscular weakness [None]
  - Gait disturbance [None]
  - Dizziness [None]
  - Fall [None]
